FAERS Safety Report 7914076-8 (Version None)
Quarter: 2011Q4

REPORT INFORMATION
  Report Type: 
  Country: None (occurrence: None)
  Receive Date: 20111115
  Receipt Date: 20111107
  Transmission Date: 20120403
  Serious: Yes (Other)
  Sender: FDA-Public Use
  Company Number: US-ASTELLAS-2011US007426

PATIENT

DRUGS (22)
  1. METOPROLOL SUCCINATE [Concomitant]
     Indication: BLOOD PRESSURE
     Dosage: 50 MG, BID
     Route: 048
     Dates: start: 20010101
  2. DIAZEPAM [Concomitant]
     Indication: ARTHROPATHY
     Dosage: 5 MG, BID
     Route: 048
     Dates: start: 20090101
  3. AMITRIPTYLINE HCL [Concomitant]
     Indication: ARTHROPATHY
     Dosage: 50 MG, UID/QD
     Route: 048
     Dates: start: 20090101
  4. TRICOR [Concomitant]
     Indication: BLOOD CHOLESTEROL
     Dosage: 145 MG, UID/QD
     Route: 048
     Dates: start: 20111031
  5. B12-VITAMIIN [Concomitant]
     Indication: BACK DISORDER
  6. NITROSTAT [Concomitant]
     Indication: CHEST PAIN
  7. AMITRIPTYLINE HCL [Concomitant]
     Indication: FIBROMYALGIA
  8. AMITRIPTYLINE HCL [Concomitant]
     Indication: DEPRESSION
  9. CYCLOBENZAPRINE [Concomitant]
     Indication: MUSCLE RELAXANT THERAPY
     Dosage: 10 MG, TID
     Route: 048
     Dates: start: 20010101
  10. NITROSTAT [Concomitant]
     Indication: ANGINA PECTORIS
     Dosage: 0.4 MG, PRN
     Route: 048
     Dates: start: 20050101
  11. OXYCODONE HCL [Concomitant]
     Indication: PAIN
     Dosage: 10/650 MG Q6H
     Route: 048
     Dates: start: 20010101
  12. CELLCEPT [Concomitant]
     Indication: RENAL TRANSPLANT
     Dosage: 750 MG, BID
     Route: 048
     Dates: start: 20010816
  13. GLIPIZIDE [Concomitant]
     Indication: DIABETES MELLITUS
     Dosage: 10 MG, BID
     Route: 048
     Dates: start: 20050101
  14. PREDNISONE [Concomitant]
     Indication: ARTHROPATHY
     Dosage: 5 MG, UID/QD
     Route: 048
     Dates: start: 20110801
  15. PREDNISONE [Concomitant]
     Indication: RENAL TRANSPLANT
  16. LISINOPRIL [Concomitant]
     Indication: BLOOD PRESSURE
     Dosage: 20 MG, BID
     Route: 048
     Dates: start: 20110801
  17. FOLIC ACID [Concomitant]
     Indication: COAGULOPATHY
     Dosage: 5 MG, UID/QD
     Route: 048
     Dates: start: 20010101
  18. PROGRAF [Suspect]
     Indication: RENAL TRANSPLANT
     Dosage: 2 MG, BID
     Route: 048
     Dates: start: 20010816
  19. ZOLPIDEM [Concomitant]
     Indication: SLEEP DISORDER
     Dosage: 5 MG, UID/QD
     Route: 048
     Dates: start: 20110801
  20. ASPIRIN [Concomitant]
     Indication: ANTICOAGULANT THERAPY
     Dosage: 325 MG, UID/QD
     Route: 048
     Dates: start: 20050101
  21. B12-VITAMIIN [Concomitant]
     Indication: COAGULOPATHY
     Dosage: 1000 UG, UID/QD
     Route: 048
     Dates: start: 20010101
  22. PRASUGREL [Concomitant]
     Indication: ANTICOAGULANT THERAPY
     Dosage: 10 MG, UID/QD
     Route: 048
     Dates: start: 20111031

REACTIONS (2)
  - MYOCARDIAL INFARCTION [None]
  - HAEMATOMA [None]
